FAERS Safety Report 21201909 (Version 1)
Quarter: 2022Q3

REPORT INFORMATION
  Report Type: Report from Study
  Country: TW (occurrence: TW)
  Receive Date: 20220811
  Receipt Date: 20220811
  Transmission Date: 20221027
  Serious: Yes (Death, Other)
  Sender: FDA-Public Use
  Company Number: TW-BoehringerIngelheim-2022-BI-186597

PATIENT
  Age: 82 Year
  Sex: Male
  Weight: 67 kg

DRUGS (1)
  1. OFEV [Suspect]
     Active Substance: NINTEDANIB
     Indication: Idiopathic pulmonary fibrosis
     Route: 048
     Dates: start: 20211014, end: 20220325

REACTIONS (1)
  - Idiopathic pulmonary fibrosis [Fatal]

NARRATIVE: CASE EVENT DATE: 20220305
